FAERS Safety Report 7820668-7 (Version None)
Quarter: 2011Q4

REPORT INFORMATION
  Report Type: 
  Country: None (occurrence: None)
  Receive Date: 20111013
  Receipt Date: 20110930
  Transmission Date: 20120403
  Serious: Yes (Hospitalization, Other)
  Sender: FDA-Public Use
  Company Number: AUR-APL-2010-00134

PATIENT
  Age: 35 Year
  Sex: Male

DRUGS (5)
  1. ONDANSETRON [Suspect]
     Indication: VOMITING
  2. METOCLOPRAMIDE HCL [Suspect]
     Indication: VOMITING
  3. FENTANYL [Concomitant]
  4. MORPHINE SULFATE INJ [Suspect]
     Indication: PROCEDURAL PAIN
  5. PROCHLORPERAZINE MALEATE [Suspect]
     Indication: VOMITING

REACTIONS (12)
  - INFUSION SITE HAEMATOMA [None]
  - RESPIRATORY FAILURE [None]
  - PNEUMOTHORAX [None]
  - DIAPHRAGMATIC HERNIA [None]
  - PERITONEAL HAEMORRHAGE [None]
  - SUBCUTANEOUS EMPHYSEMA [None]
  - RESPIRATORY DISTRESS [None]
  - INFUSION SITE EXTRAVASATION [None]
  - VOMITING [None]
  - HAEMOTHORAX [None]
  - DIAPHRAGMATIC RUPTURE [None]
  - RESPIRATORY GAS EXCHANGE DISORDER [None]
